FAERS Safety Report 4834887-5 (Version None)
Quarter: 2005Q4

REPORT INFORMATION
  Report Type: 
  Country: None (occurrence: None)
  Receive Date: 20051115
  Receipt Date: 20051101
  Transmission Date: 20060501
  Serious: Yes (Other)
  Sender: FDA-Public Use
  Company Number: MK200511-0031-1

PATIENT
  Age: 9 Year
  Sex: Male

DRUGS (1)
  1. PHOSPHOCOL P32 [Suspect]
     Indication: SYNOVECTOMY
     Dosage: 0.29 + 0.3 MCI

REACTIONS (6)
  - ACUTE LYMPHOCYTIC LEUKAEMIA [None]
  - BRONCHIOLITIS [None]
  - DEMYELINATION [None]
  - DRUG TOXICITY [None]
  - NECROSIS [None]
  - VENOOCCLUSIVE DISEASE [None]
